FAERS Safety Report 16818246 (Version 2)
Quarter: 2019Q3

REPORT INFORMATION
  Report Type: Report from Study
  Country: TW (occurrence: TW)
  Receive Date: 20190917
  Receipt Date: 20190930
  Transmission Date: 20191005
  Serious: Yes (Other)
  Sender: FDA-Public Use
  Company Number: PHHY2019TW213580

PATIENT
  Age: 39 Year
  Sex: Female

DRUGS (31)
  1. ACTIFED [Concomitant]
     Indication: RHINITIS ALLERGIC
     Dosage: 2.5/60
     Route: 048
     Dates: start: 20180831, end: 20180907
  2. BISOPROLOL [Concomitant]
     Active Substance: BISOPROLOL
     Dosage: 1.25 MG, UNK
     Route: 048
     Dates: start: 20171225, end: 20180124
  3. BISOPROLOL [Concomitant]
     Active Substance: BISOPROLOL
     Dosage: 1.25 MG, UNK
     Route: 048
     Dates: start: 20170927, end: 20171027
  4. DAILYCARE ACTIBEST [Concomitant]
     Indication: PROPHYLAXIS
     Dosage: UNK
     Route: 048
     Dates: start: 20170412
  5. PIPRINHYDRINATE [Concomitant]
     Indication: RHINITIS ALLERGIC
     Dosage: 3 MG, UNK
     Route: 048
     Dates: start: 20171221, end: 20180104
  6. BROEN-C [Concomitant]
     Indication: RHINITIS ALLERGIC
     Dosage: 1 DF, UNK
     Route: 048
     Dates: start: 20171214, end: 20171221
  7. LEVOCETIRIZINE [Concomitant]
     Active Substance: LEVOCETIRIZINE
     Dosage: 5 MG, UNK
     Route: 048
     Dates: start: 20180419, end: 20180607
  8. TASIGNA [Suspect]
     Active Substance: NILOTINIB
     Indication: CHRONIC MYELOID LEUKAEMIA
     Dosage: 600 MG, UNK
     Route: 048
     Dates: start: 20151127
  9. ACTIFED [Concomitant]
     Dosage: 1 DF, UNK
     Route: 048
     Dates: start: 20170213, end: 20170223
  10. FLUTICASONE. [Concomitant]
     Active Substance: FLUTICASONE
     Indication: RHINITIS ALLERGIC
     Dosage: UNK, BID (PUFF)
     Route: 045
     Dates: start: 20161116, end: 20161217
  11. ROSUVASTATIN. [Concomitant]
     Active Substance: ROSUVASTATIN
     Indication: RHINITIS ALLERGIC
     Dosage: 10 MG, UNK
     Route: 048
     Dates: start: 20180319, end: 20181007
  12. TRIAMCINOLONE [Concomitant]
     Active Substance: TRIAMCINOLONE
     Indication: PROPHYLAXIS
     Dosage: UNK
     Route: 061
     Dates: start: 20170607, end: 20170614
  13. ACTIFED [Concomitant]
     Dosage: 1 DF, UNK
     Route: 048
     Dates: start: 20161222, end: 20170119
  14. BISOPROLOL [Concomitant]
     Active Substance: BISOPROLOL
     Indication: RHINITIS ALLERGIC
     Dosage: 1.25 MG, UNK
     Route: 048
     Dates: start: 20170308, end: 20170408
  15. BISOPROLOL [Concomitant]
     Active Substance: BISOPROLOL
     Dosage: 1.25 MG, UNK
     Route: 048
     Dates: start: 20161116, end: 20161217
  16. BISOPROLOL [Concomitant]
     Active Substance: BISOPROLOL
     Dosage: 1.25 MG, UNK
     Route: 048
     Dates: start: 20180319, end: 20181007
  17. LEVOCETIRIZINE [Concomitant]
     Active Substance: LEVOCETIRIZINE
     Indication: RHINITIS ALLERGIC
     Dosage: 5 MG, UNK
     Dates: start: 20161116, end: 20161217
  18. ROSUVASTATIN. [Concomitant]
     Active Substance: ROSUVASTATIN
     Dosage: 5 MG, UNK
     Route: 048
     Dates: start: 20171225, end: 20180124
  19. TOPSYMIN [Concomitant]
     Indication: RHINITIS ALLERGIC
     Dosage: UNK
     Route: 065
     Dates: start: 20180419, end: 20180607
  20. ACTIFED [Concomitant]
     Dosage: 1 DF, UNK
     Route: 048
     Dates: start: 20180419, end: 20180607
  21. ROSUVASTATIN. [Concomitant]
     Active Substance: ROSUVASTATIN
     Dosage: 5 MG, UNK
     Route: 048
     Dates: start: 20170308, end: 20170408
  22. ROSUVASTATIN. [Concomitant]
     Active Substance: ROSUVASTATIN
     Dosage: 5 MG, UNK
     Route: 048
     Dates: start: 20161116, end: 20161217
  23. ACTIFED [Concomitant]
     Dosage: 1 DF, UNK
     Route: 048
     Dates: start: 20161116, end: 20161121
  24. BISOPROLOL [Concomitant]
     Active Substance: BISOPROLOL
     Dosage: 1.25 MG, UNK
     Route: 048
     Dates: start: 20170621, end: 20170721
  25. FUSIDIC ACID [Concomitant]
     Active Substance: FUSIDIC ACID
     Indication: FIBROCYSTIC BREAST DISEASE
     Dosage: 5 G, UNK
     Route: 065
     Dates: start: 20180430, end: 20180510
  26. HIROS [Concomitant]
     Indication: RHINITIS ALLERGIC
     Dosage: UNK
     Route: 048
     Dates: start: 20180829
  27. MOMETASONE [Concomitant]
     Active Substance: MOMETASONE
     Indication: RHINITIS ALLERGIC
     Dosage: 1 DF, UNK
     Route: 045
     Dates: start: 20171221, end: 20180108
  28. PREDNISOLONE. [Concomitant]
     Active Substance: PREDNISOLONE
     Indication: RHINITIS ALLERGIC
     Dosage: 5 MG, UNK
     Route: 048
     Dates: start: 20180808, end: 20180815
  29. ROSUVASTATIN. [Concomitant]
     Active Substance: ROSUVASTATIN
     Dosage: 5 MG, UNK
     Route: 048
     Dates: start: 20170621, end: 20170721
  30. ROSUVASTATIN. [Concomitant]
     Active Substance: ROSUVASTATIN
     Dosage: 5 MG, UNK
     Route: 048
     Dates: start: 20170927, end: 20171027
  31. THIAMINE. [Concomitant]
     Active Substance: THIAMINE
     Indication: PROPHYLAXIS
     Dosage: 1 DF, UNK
     Route: 048
     Dates: start: 20170316, end: 20170610

REACTIONS (4)
  - Arthralgia [Recovered/Resolved]
  - Back pain [Recovering/Resolving]
  - Intervertebral disc disorder [Unknown]
  - Cervical spinal stenosis [Recovered/Resolved]

NARRATIVE: CASE EVENT DATE: 20161014
